FAERS Safety Report 4622369-5 (Version None)
Quarter: 2005Q1

REPORT INFORMATION
  Report Type: 
  Country: None (occurrence: None)
  Receive Date: 20050325
  Receipt Date: 20050325
  Transmission Date: 20050727
  Serious: Yes (Hospitalization)
  Sender: FDA-Public Use
  Company Number: None

PATIENT
  Age: 69 Year
  Sex: Male
  Weight: 83.3 kg

DRUGS (1)
  1. ALIMTA [Suspect]
     Indication: THYMOMA
     Dosage: 500MG/M2 IV Q 21 DAYS
     Route: 042
     Dates: start: 20050221, end: 20050314

REACTIONS (1)
  - STAPHYLOCOCCAL BACTERAEMIA [None]
